FAERS Safety Report 21736281 (Version 14)
Quarter: 2024Q4

REPORT INFORMATION
  Report Type: Spontaneous
  Country: CA (occurrence: CA)
  Receive Date: 20221215
  Receipt Date: 20241119
  Transmission Date: 20250115
  Serious: Yes (Other)
  Sender: CELLTRION
  Company Number: CA-CELLTRION INC.-2022CA021052

PATIENT

DRUGS (22)
  1. INFLECTRA [Suspect]
     Active Substance: INFLIXIMAB-DYYB
     Indication: Crohn^s disease
     Dosage: 5 MG/KG, Q 0, 2, 6, THEN EVERY 8 WEEKS
     Route: 042
     Dates: start: 20221025
  2. INFLECTRA [Suspect]
     Active Substance: INFLIXIMAB-DYYB
     Dosage: 5 MG/KG, EVERY 0, 2, 6, THEN EVERY 8 WEEKS
     Route: 042
     Dates: start: 20221205
  3. INFLECTRA [Suspect]
     Active Substance: INFLIXIMAB-DYYB
     Dosage: 5 MG/KG (275 MG, EVERY 8 WEEKS)
     Route: 042
     Dates: start: 20230130
  4. INFLECTRA [Suspect]
     Active Substance: INFLIXIMAB-DYYB
     Dosage: 500 MG (5 MG/KG), EVERY 8 WEEKS
     Route: 042
     Dates: start: 20230327
  5. INFLECTRA [Suspect]
     Active Substance: INFLIXIMAB-DYYB
     Dosage: 500 MG, EVERY 8 WEEKS
     Route: 042
     Dates: start: 20230523
  6. INFLECTRA [Suspect]
     Active Substance: INFLIXIMAB-DYYB
     Dosage: 275 MG, EVERY 8 WEEKS
     Route: 042
     Dates: start: 20230718
  7. INFLECTRA [Suspect]
     Active Substance: INFLIXIMAB-DYYB
     Dosage: 5 MG/KG, EVERY 0, 2, 6, THEN EVERY 8 WEEKS (285 MG)
     Route: 042
     Dates: start: 20230912
  8. INFLECTRA [Suspect]
     Active Substance: INFLIXIMAB-DYYB
     Dosage: 5 MG/KG, EVERY 0, 2, 6, THEN EVERY 8 WEEKS (285 MG)
     Route: 042
     Dates: start: 20240110
  9. INFLECTRA [Suspect]
     Active Substance: INFLIXIMAB-DYYB
     Dosage: 5 MG/KG EVERY 0, 2, 6, THEN EVERY 8 WEEKS (282.5 MG 7 WEEKS 5 DAYS)
     Route: 042
     Dates: start: 20240304
  10. INFLECTRA [Suspect]
     Active Substance: INFLIXIMAB-DYYB
     Dosage: 5 MG/KG EVERY 0, 2, 6, THEN EVERY 8 WEEKS (290MG AFTER 8 WEEKS)
     Route: 042
     Dates: start: 20240429
  11. INFLECTRA [Suspect]
     Active Substance: INFLIXIMAB-DYYB
     Dosage: 280 MG, AFTER 8 WEEKS (5 MG/KG, Q 0, 2, 6, THEN EVERY 8 WEEKS)
     Route: 042
     Dates: start: 20240624
  12. INFLECTRA [Suspect]
     Active Substance: INFLIXIMAB-DYYB
     Dosage: 300 MG, EVERY 8 WEEKS (5MG/KG, Q 0, 2, 6, THEN EVERY 8 WEEKS)
     Route: 042
     Dates: start: 20240819
  13. INFLECTRA [Suspect]
     Active Substance: INFLIXIMAB-DYYB
     Dosage: 5 MG/KG, EVERY 6 WEEKS
     Route: 042
     Dates: start: 20240927
  14. INFLECTRA [Suspect]
     Active Substance: INFLIXIMAB-DYYB
     Dosage: 300 MG, 6 WEEKS (5 MG/KG, EVERY 6 WEEKS)
     Route: 042
     Dates: start: 20241108
  15. AZATHIOPRINE [Concomitant]
     Active Substance: AZATHIOPRINE
     Dosage: 50 MG
  16. DIMENHYDRINATE [Concomitant]
     Active Substance: DIMENHYDRINATE
     Indication: Premedication
     Dosage: 25 MG
     Route: 042
  17. DIPHENHYDRAMINE [Concomitant]
     Active Substance: DIPHENHYDRAMINE
     Indication: Premedication
     Dosage: 25 MG
     Route: 048
  18. DULOXETINE [Concomitant]
     Active Substance: DULOXETINE
     Dosage: 60 MG
  19. ENTOCORT [Concomitant]
     Active Substance: BUDESONIDE
     Dosage: 3 MG
     Dates: end: 2022
  20. HYDROCORTISONE [Concomitant]
     Active Substance: HYDROCORTISONE
     Indication: Premedication
     Dosage: 50 MG
     Route: 042
  21. IMURAN [Concomitant]
     Active Substance: AZATHIOPRINE
     Dosage: UNK, DAILY (IMURAN 100 DAILY)
  22. REXULTI [Concomitant]
     Active Substance: BREXPIPRAZOLE
     Dosage: 500 UG

REACTIONS (10)
  - Rectal haemorrhage [Unknown]
  - Condition aggravated [Not Recovered/Not Resolved]
  - Nausea [Recovering/Resolving]
  - Vomiting [Recovering/Resolving]
  - Drug level decreased [Unknown]
  - Faeces hard [Unknown]
  - Arthralgia [Recovered/Resolved]
  - Abdominal pain upper [Not Recovered/Not Resolved]
  - Hiatus hernia [Not Recovered/Not Resolved]
  - Off label use [Unknown]

NARRATIVE: CASE EVENT DATE: 20230101
